FAERS Safety Report 18886848 (Version 1)
Quarter: 2021Q1

REPORT INFORMATION
  Report Type: Spontaneous
  Country: US (occurrence: US)
  Receive Date: 20210212
  Receipt Date: 20210212
  Transmission Date: 20210420
  Serious: No
  Sender: FDA-Public Use
  Company Number: US-IBSA PHARMA INC.-2020IBS000265

PATIENT
  Sex: Female

DRUGS (3)
  1. TIROSINT?SOL [Suspect]
     Active Substance: LEVOTHYROXINE SODIUM
     Dosage: 50MCG/ML AT 6 AM 25MCG/ML AT 2 PMUNK
     Route: 048
  2. TIROSINT?SOL [Suspect]
     Active Substance: LEVOTHYROXINE SODIUM
     Dosage: 50MCG/ML AT 6 AM 25MCG/ML AT 2PM
     Route: 048
  3. TIROSINT?SOL [Suspect]
     Active Substance: LEVOTHYROXINE SODIUM
     Indication: PRODUCT USED FOR UNKNOWN INDICATION
     Dosage: 75MCG/ML
     Route: 048

REACTIONS (2)
  - Drug level above therapeutic [Recovered/Resolved]
  - Weight decreased [Recovered/Resolved]
